FAERS Safety Report 6805803-1 (Version None)
Quarter: 2010Q2

REPORT INFORMATION
  Report Type: 
  Country: None (occurrence: None)
  Receive Date: 20100629
  Receipt Date: 20080729
  Transmission Date: 20101027
  Serious: No
  Sender: FDA-Public Use
  Company Number: US-PFIZER INC-2006129816

PATIENT
  Age: 82 Year
  Sex: Male
  Weight: 74.8 kg

DRUGS (10)
  1. VIAGRA [Suspect]
  2. FELODIPINE [Concomitant]
  3. LISINOPRIL [Concomitant]
  4. LEVOTHYROXINE SODIUM [Concomitant]
  5. RANITIDINE [Concomitant]
  6. AMOXICILLIN [Concomitant]
  7. OLANZAPINE [Concomitant]
  8. NIACIN [Concomitant]
  9. VITAMINS [Concomitant]
  10. ALL OTHER NON-THERAPEUTIC PRODUCTS [Concomitant]

REACTIONS (1)
  - ERECTILE DYSFUNCTION [None]
